FAERS Safety Report 16406014 (Version 2)
Quarter: 2019Q3

REPORT INFORMATION
  Report Type: Spontaneous
  Country: US (occurrence: US)
  Receive Date: 20190607
  Receipt Date: 20190801
  Transmission Date: 20191004
  Serious: Yes (Hospitalization)
  Sender: FDA-Public Use
  Company Number: US-PFM-2019-06415

PATIENT
  Sex: Male
  Weight: 9 kg

DRUGS (1)
  1. HEMANGEOL [Suspect]
     Active Substance: PROPRANOLOL HYDROCHLORIDE
     Indication: INFANTILE HAEMANGIOMA
     Dosage: 2.3 ML, BID (2/DAY)
     Route: 048
     Dates: start: 20180725

REACTIONS (5)
  - Blood pressure decreased [Recovered/Resolved]
  - Product use issue [Unknown]
  - Bacterial infection [Unknown]
  - Sleep disorder [Unknown]
  - Off label use [Unknown]
